FAERS Safety Report 17749308 (Version 2)
Quarter: 2020Q3

REPORT INFORMATION
  Report Type: Spontaneous
  Country: US (occurrence: US)
  Receive Date: 20200506
  Receipt Date: 20200723
  Transmission Date: 20201102
  Serious: Yes (Life-Threatening, Hospitalization)
  Sender: FDA-Public Use
  Company Number: US-VIFOR (INTERNATIONAL) INC.-VIT-2020-05668

PATIENT
  Age: 67 Year
  Sex: Male
  Weight: 108 kg

DRUGS (1)
  1. MIRCERA [Suspect]
     Active Substance: METHOXY POLYETHYLENE GLYCOL-EPOETIN BETA
     Indication: NEPHROGENIC ANAEMIA
     Route: 041
     Dates: start: 20200425, end: 20200425

REACTIONS (11)
  - Thrombocytopenia [Unknown]
  - Cardio-respiratory arrest [Unknown]
  - Hypotension [Not Recovered/Not Resolved]
  - Pulmonary amyloidosis [Unknown]
  - Septic shock [Unknown]
  - Leukocytosis [Unknown]
  - Respiratory failure [Unknown]
  - Unresponsive to stimuli [Recovered/Resolved]
  - Apnoea [Recovered/Resolved]
  - Pneumonia [Unknown]
  - Metabolic encephalopathy [Unknown]

NARRATIVE: CASE EVENT DATE: 2020
